FAERS Safety Report 7736257-9 (Version None)
Quarter: 2011Q3

REPORT INFORMATION
  Report Type: 
  Country: None (occurrence: None)
  Receive Date: 20110902
  Receipt Date: 20110817
  Transmission Date: 20111222
  Serious: Yes (Disabling)
  Sender: FDA-Public Use
  Company Number: GGEL20110800765

PATIENT
  Sex: Male
  Weight: 86 kg

DRUGS (6)
  1. SODIUM CROMOGLYCATE (CROMOGLYCIC ACID)(CROMOGLYCIC ACID) [Concomitant]
  2. PRAMIPEXOLE DIHYDROCHLORIDE [Suspect]
     Indication: RESTLESS LEGS SYNDROME
     Dosage: 125 MICROGRAM, 1 IN 1 D, ORAL USE
     Route: 048
     Dates: start: 20110216, end: 20110517
  3. GAVISCON ADVANCE (POTASSIUM BICARBONATE, SODIUM ALGINATE)(POTASSIUM BI [Concomitant]
  4. AMITRIPTYLINE (AMITRIPTYLINE)(AMITRIPTYLINE) [Concomitant]
  5. FEXOFENADINE (FEXOFENADINE)(FEXOFENADINE) [Concomitant]
  6. ESOMEPRAZOLE (ESOMEPRAZOLE)(ESOMEPRAZOLE) [Concomitant]

REACTIONS (1)
  - IVTH NERVE PARESIS [None]
